FAERS Safety Report 18957846 (Version 1)
Quarter: 2021Q1

REPORT INFORMATION
  Report Type: Spontaneous
  Country: US (occurrence: US)
  Receive Date: 20210302
  Receipt Date: 20210302
  Transmission Date: 20210420
  Serious: Yes (Life-Threatening, Hospitalization, Disabling)
  Sender: FDA-Public Use
  Company Number: None

PATIENT
  Age: 43 Year
  Sex: Female
  Weight: 58.5 kg

DRUGS (3)
  1. COENZYME Q10 [Concomitant]
     Active Substance: DIETARY SUPPLEMENT\UBIDECARENONE
  2. ALBUTEROL. [Concomitant]
     Active Substance: ALBUTEROL
  3. INJECTAFER [Suspect]
     Active Substance: FERRIC CARBOXYMALTOSE
     Indication: IRON DEFICIENCY
     Route: 042
     Dates: start: 20201111, end: 20201118

REACTIONS (11)
  - Hypophosphataemia [None]
  - Haemorrhage [None]
  - Epstein-Barr virus test positive [None]
  - Fatigue [None]
  - Stress [None]
  - Headache [None]
  - Hepatic enzyme increased [None]
  - Loss of personal independence in daily activities [None]
  - Dyspnoea [None]
  - Serum ferritin increased [None]
  - Anxiety [None]

NARRATIVE: CASE EVENT DATE: 20201118
